FAERS Safety Report 7344635-5 (Version None)
Quarter: 2011Q1

REPORT INFORMATION
  Report Type: 
  Country: None (occurrence: None)
  Receive Date: 20110307
  Receipt Date: 20110307
  Transmission Date: 20110831
  Serious: Yes (Hospitalization, Disabling)
  Sender: FDA-Public Use
  Company Number: None

PATIENT
  Age: 75 Year
  Sex: Female
  Weight: 84.5 kg

DRUGS (2)
  1. ENOXAPARIN [Suspect]
     Indication: MYOCARDIAL INFARCTION
     Dosage: 80 MG Q12H SQ
     Route: 058
     Dates: start: 20101128, end: 20101129
  2. ASPIRIN [Concomitant]

REACTIONS (3)
  - HAEMATOMA [None]
  - PULSE ABSENT [None]
  - HAEMORRHAGE [None]
